FAERS Safety Report 4519507-1 (Version None)
Quarter: 2005Q1

REPORT INFORMATION
  Report Type: 
  Country: None (occurrence: None)
  Receive Date: 20041101
  Receipt Date: 20040220
  Transmission Date: 20050727
  Serious: Yes (Other)
  Sender: FDA-Public Use
  Company Number: HQWYE272124FEB04

PATIENT
  Age: 50 Year
  Sex: Female
  Weight: 81.72 kg

DRUGS (4)
  1. PREMARIN [Suspect]
     Indication: HOT FLUSH
     Dosage: 0.625 MG/DAILY, ORAL
     Route: 048
     Dates: start: 19990101
  2. PREMARIN [Suspect]
     Indication: OESTROGEN REPLACEMENT THERAPY
     Dosage: 0.625 MG/DAILY, ORAL
     Route: 048
     Dates: start: 19990101
  3. LEVOXYL [Concomitant]
  4. PROGESTERONE [Concomitant]

REACTIONS (3)
  - ARTHRALGIA [None]
  - DRUG INEFFECTIVE [None]
  - PALPITATIONS [None]
